FAERS Safety Report 5827791-7 (Version None)
Quarter: 2008Q3

REPORT INFORMATION
  Report Type: 
  Country: None (occurrence: None)
  Receive Date: 20080730
  Receipt Date: 20080718
  Transmission Date: 20090109
  Serious: Yes (Death, Hospitalization)
  Sender: FDA-Public Use
  Company Number: ES-PFIZER INC-2006073956

PATIENT
  Sex: Male
  Weight: 57 kg

DRUGS (7)
  1. SU-011,248 [Suspect]
     Indication: METASTATIC RENAL CELL CARCINOMA
     Route: 048
  2. MORPHINE SULFATE [Concomitant]
     Route: 048
  3. MORPHINE [Concomitant]
     Route: 048
  4. GABAPENTIN [Concomitant]
     Route: 048
  5. DEXAMETHASONE [Concomitant]
     Route: 048
  6. LORMETAZEPAM [Concomitant]
     Route: 048
  7. PYRIDOSTIGMINE BROMIDE [Concomitant]
     Route: 048

REACTIONS (1)
  - PNEUMONIA [None]
